FAERS Safety Report 6412644-6 (Version None)
Quarter: 2009Q4

REPORT INFORMATION
  Report Type: 
  Country: None (occurrence: None)
  Receive Date: 20091023
  Receipt Date: 20091015
  Transmission Date: 20100525
  Serious: Yes (Hospitalization, Other)
  Sender: FDA-Public Use
  Company Number: PHHY2009ZA44610

PATIENT
  Age: 71 Year
  Sex: Female
  Weight: 65 kg

DRUGS (2)
  1. FEMARA [Suspect]
     Indication: BREAST CANCER
     Dosage: 2.5 MG, UNK
     Route: 048
  2. LITHIUM [Concomitant]
     Indication: BIPOLAR I DISORDER
     Dosage: UNK

REACTIONS (5)
  - BACK PAIN [None]
  - LUNG LOBECTOMY [None]
  - MYALGIA [None]
  - OBLITERATIVE BRONCHIOLITIS [None]
  - SPINAL OSTEOARTHRITIS [None]
